FAERS Safety Report 20204718 (Version 1)
Quarter: 2021Q4

REPORT INFORMATION
  Report Type: Spontaneous
  Country: US (occurrence: US)
  Receive Date: 20211220
  Receipt Date: 20211220
  Transmission Date: 20220303
  Serious: Yes (Death, Hospitalization)
  Sender: FDA-Public Use
  Company Number: None

PATIENT
  Age: 41 Year
  Sex: Male
  Weight: 111 kg

DRUGS (4)
  1. TYLENOL EXTRA STRENGTH [Suspect]
     Active Substance: ACETAMINOPHEN
     Indication: Suicide attempt
     Dosage: 2 BOTTLES
     Route: 065
     Dates: start: 20030721, end: 20030721
  2. VICKS NYQUIL [Suspect]
     Active Substance: ACETAMINOPHEN\DEXTROMETHORPHAN HYDROBROMIDE\DOXYLAMINE SUCCINATE
     Indication: Suicide attempt
     Dosage: 2 BOTTLES
     Route: 048
     Dates: start: 20030721, end: 20030721
  3. GLUCOPHAGE [Concomitant]
     Active Substance: METFORMIN HYDROCHLORIDE
     Indication: Product used for unknown indication
     Dosage: TOTAL DAILY DOSE OF 1000 MG FOR MONTHS
     Route: 065
  4. SYNTHROID [Concomitant]
     Active Substance: LEVOTHYROXINE SODIUM
     Indication: Product used for unknown indication
     Dosage: TOTAL DAILY DOSE OF 0.25 MG FOR MONTHS
     Route: 065

REACTIONS (8)
  - Multiple organ dysfunction syndrome [Fatal]
  - Completed suicide [Fatal]
  - Intentional overdose [Fatal]
  - Acute hepatic failure [Fatal]
  - Seizure [Fatal]
  - Arrhythmia [Fatal]
  - Acute kidney injury [Fatal]
  - Chest X-ray abnormal [Fatal]

NARRATIVE: CASE EVENT DATE: 20030725
